FAERS Safety Report 7558051-4 (Version None)
Quarter: 2011Q2

REPORT INFORMATION
  Report Type: 
  Country: None (occurrence: None)
  Receive Date: 20110620
  Receipt Date: 20110613
  Transmission Date: 20111010
  Serious: Yes (Other)
  Sender: FDA-Public Use
  Company Number: PHHY2011GB05791

PATIENT
  Age: 50 Year
  Sex: Female

DRUGS (7)
  1. RAMIPRIL [Concomitant]
  2. AMLODIPINE [Concomitant]
  3. VENTOLIN HFA [Concomitant]
  4. METFORMIN HCL [Concomitant]
  5. SERETIDE [Concomitant]
  6. SIMVASTATIN [Suspect]
     Indication: DIABETES MELLITUS
     Dosage: 40 MG, 1 1DAYS
     Dates: start: 20101008, end: 20101104
  7. BENDROFLUMETHIAZIDE [Concomitant]
     Dosage: 2.5 MG, UNK

REACTIONS (1)
  - VISUAL ACUITY REDUCED [None]
